FAERS Safety Report 22187221 (Version 3)
Quarter: 2023Q2

REPORT INFORMATION
  Report Type: Spontaneous
  Country: CA (occurrence: CA)
  Receive Date: 20230407
  Receipt Date: 20230602
  Transmission Date: 20230722
  Serious: Yes (Other)
  Sender: FDA-Public Use
  Company Number: CA-PFIZER INC-202300138087

PATIENT
  Age: 57 Year
  Sex: Male

DRUGS (1)
  1. RUXIENCE [Suspect]
     Active Substance: RITUXIMAB-PVVR
     Indication: Thrombotic thrombocytopenic purpura
     Dosage: 830 MG, WEEKLY (IV EVERY WEEK X 4 WEEKS)
     Route: 042

REACTIONS (3)
  - Dialysis [Unknown]
  - Transplant [Unknown]
  - Off label use [Unknown]
